FAERS Safety Report 10870232 (Version 2)
Quarter: 2015Q1

REPORT INFORMATION
  Report Type: Spontaneous
  Country: None (occurrence: JP)
  Receive Date: 20150226
  Receipt Date: 20150312
  Transmission Date: 20150721
  Serious: Yes (Death, Hospitalization, Other)
  Sender: FDA-Public Use
  Company Number: JP-TEVA-543198ISR

PATIENT
  Age: 47 Year
  Sex: Female

DRUGS (3)
  1. EPIRUBICIN [Suspect]
     Active Substance: EPIRUBICIN
     Indication: ADENOCARCINOMA OF THE CERVIX
     Route: 065
  2. CISPLATIN. [Suspect]
     Active Substance: CISPLATIN
     Indication: ADENOCARCINOMA OF THE CERVIX
     Dosage: CISPLATIN-LIPIODOL SUSPENSION
     Route: 065
  3. IFOSFAMIDE. [Suspect]
     Active Substance: IFOSFAMIDE
     Indication: ADENOCARCINOMA OF THE CERVIX
     Route: 042

REACTIONS (7)
  - Acute myeloid leukaemia [Fatal]
  - Sepsis [Unknown]
  - Gastrointestinal haemorrhage [Fatal]
  - Anaemia [Unknown]
  - Bronchitis [Unknown]
  - Pyrexia [Unknown]
  - Second primary malignancy [Fatal]

NARRATIVE: CASE EVENT DATE: 19990629
